FAERS Safety Report 19412375 (Version 2)
Quarter: 2021Q3

REPORT INFORMATION
  Report Type: Spontaneous
  Country: US (occurrence: US)
  Receive Date: 20210614
  Receipt Date: 20210712
  Transmission Date: 20211014
  Serious: No
  Sender: FDA-Public Use
  Company Number: US-ASTRAZENECA-2021A465975

PATIENT
  Age: 874 Month
  Sex: Female
  Weight: 54 kg

DRUGS (1)
  1. PULMICORT FLEXHALER [Suspect]
     Active Substance: BUDESONIDE
     Indication: HYPERSENSITIVITY
     Dosage: 180 MCG TWO PUFFS ONCE A DAY
     Route: 055

REACTIONS (4)
  - Device issue [Unknown]
  - Cough [Not Recovered/Not Resolved]
  - Intentional dose omission [Unknown]
  - Intentional device misuse [Not Recovered/Not Resolved]

NARRATIVE: CASE EVENT DATE: 202105
